FAERS Safety Report 10210989 (Version 1)
Quarter: 2014Q2

REPORT INFORMATION
  Report Type: Report from Study
  Country: TN (occurrence: TN)
  Receive Date: 20140602
  Receipt Date: 20140602
  Transmission Date: 20141212
  Serious: Yes (Death)
  Sender: FDA-Public Use
  Company Number: TN-SA-2014SA068315

PATIENT
  Age: 62 Year
  Sex: Female

DRUGS (7)
  1. PLAVIX [Suspect]
     Indication: ANGINA UNSTABLE
     Dosage: DOSE: 75
     Route: 048
     Dates: start: 20140124, end: 20140128
  2. ASPIRIN [Concomitant]
     Route: 048
  3. GLUCOPHAGE [Concomitant]
     Route: 048
  4. COVERSYL [Concomitant]
     Route: 048
  5. LOPRIL /FRA/ [Concomitant]
     Route: 048
  6. LASILIX [Concomitant]
     Route: 048
  7. AMAREL [Concomitant]
     Route: 048

REACTIONS (1)
  - Myocardial infarction [Fatal]
